FAERS Safety Report 8251004-2 (Version None)
Quarter: 2012Q2

REPORT INFORMATION
  Report Type: 
  Country: None (occurrence: None)
  Receive Date: 20120402
  Receipt Date: 20120327
  Transmission Date: 20120825
  Serious: No
  Sender: FDA-Public Use
  Company Number: US-PFIZER INC-2012078450

PATIENT
  Sex: Female
  Weight: 94.331 kg

DRUGS (6)
  1. ATIVAN [Concomitant]
     Indication: NERVOUS SYSTEM DISORDER
     Dosage: 2 MG, UNK
  2. CELEBREX [Suspect]
     Indication: BURSITIS
     Dosage: 200 MG, 2X/DAY
     Dates: end: 20120301
  3. CIMETIDINE [Concomitant]
     Indication: GASTRIC DISORDER
     Dosage: 400 MG, 4X/DAY
  4. COMPAZINE [Concomitant]
     Indication: GASTRIC DISORDER
     Dosage: 10 MG, 4X/DAY
  5. ZENTEL [Concomitant]
     Indication: GASTRIC DISORDER
     Dosage: UNK
  6. ELAVIL [Concomitant]
     Indication: MAJOR DEPRESSION
     Dosage: 150 MG, UNK

REACTIONS (5)
  - FOOT DEFORMITY [None]
  - PAIN IN EXTREMITY [None]
  - DRUG INTOLERANCE [None]
  - ABDOMINAL PAIN UPPER [None]
  - WEIGHT DECREASED [None]
